FAERS Safety Report 10045505 (Version 1)
Quarter: 2014Q1

REPORT INFORMATION
  Report Type: Spontaneous
  Country: US (occurrence: None)
  Receive Date: 20140306
  Receipt Date: 20140306
  Transmission Date: 20141002
  Serious: Yes (Other)
  Sender: FDA-Public Use
  Company Number: 163-21880-13061158

PATIENT
  Age: 78 Year
  Sex: Male
  Weight: 79.38 kg

DRUGS (6)
  1. REVLIMID (LENALIDOMIDE) (5 MILLIGRAM, CAPSULES) [Suspect]
     Indication: MYELODYSPLASTIC SYNDROME
     Route: 048
     Dates: start: 20130509
  2. AMLODIPINE BESYLATE [Concomitant]
  3. ATENOLOL [Concomitant]
  4. LISINOPRIL [Concomitant]
  5. GLYBURIDE (GLIBENCLAMIDE) [Concomitant]
  6. CRESTOR (ROSUVASTATIN) [Concomitant]

REACTIONS (9)
  - Full blood count decreased [None]
  - Dyspnoea [None]
  - Fatigue [None]
  - Constipation [None]
  - Nausea [None]
  - Oedema peripheral [None]
  - Cough [None]
  - Asthenia [None]
  - Pruritus [None]
